FAERS Safety Report 6401604-7 (Version None)
Quarter: 2009Q4

REPORT INFORMATION
  Report Type: 
  Country: None (occurrence: None)
  Receive Date: 20091015
  Receipt Date: 20091009
  Transmission Date: 20100525
  Serious: Yes (Death, Life-Threatening)
  Sender: FDA-Public Use
  Company Number: JP-JNJFOC-20090903275

PATIENT
  Age: 89 Year
  Sex: Male

DRUGS (35)
  1. DUROTEP MT [Suspect]
     Route: 062
  2. DUROTEP MT [Suspect]
     Route: 062
  3. DUROTEP MT [Suspect]
     Route: 062
  4. DUROTEP MT [Suspect]
     Route: 062
  5. DUROTEP MT [Suspect]
     Route: 062
  6. DUROTEP MT [Suspect]
     Route: 062
  7. DUROTEP MT [Suspect]
     Route: 062
  8. DUROTEP MT [Suspect]
     Route: 062
  9. DUROTEP MT [Suspect]
     Route: 062
  10. DUROTEP MT [Suspect]
     Route: 062
  11. DUROTEP MT [Suspect]
     Route: 062
  12. DUROTEP MT [Suspect]
     Route: 062
  13. DUROTEP MT [Suspect]
     Route: 062
  14. DUROTEP MT [Suspect]
     Indication: CANCER PAIN
     Route: 062
  15. RISPERDAL [Suspect]
     Indication: DELIRIUM
     Route: 048
  16. OXINORM (OXYCODONE HYDROCHLORIDE) [Suspect]
     Route: 048
  17. OXINORM (OXYCODONE HYDROCHLORIDE) [Suspect]
     Indication: CANCER PAIN
     Route: 048
  18. DORMICUM [Suspect]
     Indication: INSOMNIA
     Route: 058
  19. BANAN [Concomitant]
     Indication: PNEUMONIA ASPIRATION
     Route: 048
  20. GASTER [Concomitant]
     Indication: PROPHYLAXIS
     Route: 048
  21. TIAPRIDE HYDORCHLORIDE [Concomitant]
     Indication: DELIRIUM
     Dosage: PERORAL MEDICINE
     Route: 048
  22. SERENACE [Concomitant]
     Indication: DELIRIUM
     Route: 058
  23. MEROPENEM [Concomitant]
     Indication: PNEUMONIA ASPIRATION
     Route: 041
  24. ZOMETA [Concomitant]
     Indication: ANALGESIC THERAPY
     Route: 041
  25. TIENAM [Concomitant]
     Indication: PNEUMONIA ASPIRATION
     Route: 030
  26. OXINORM (OXYCODONE HYDROCHLORIDE) [Concomitant]
     Indication: ANALGESIC THERAPY
     Route: 048
  27. GABAPEN [Concomitant]
     Dosage: PERORAL MEDICINE
     Route: 048
  28. GABAPEN [Concomitant]
     Indication: ANALGESIC THERAPY
     Dosage: PERORAL MEDICINE
     Route: 048
  29. LIORESAL [Concomitant]
     Indication: ANALGESIC THERAPY
     Route: 048
  30. CALONAL [Concomitant]
     Indication: ANALGESIC THERAPY
     Route: 048
  31. LOXOPROFEN SODIUM [Concomitant]
     Indication: ANALGESIC THERAPY
     Route: 048
  32. MYSLEE [Concomitant]
     Indication: INSOMNIA
     Dosage: PERORAL MEDICINE
     Route: 048
  33. MAGNESIUM OXIDE [Concomitant]
     Indication: CONSTIPATION
     Dosage: PERORAL MEDICINE
     Route: 048
  34. HANGE-KOBOKU-TO (HERBAL MEDICINE) [Concomitant]
     Indication: DELIRIUM
     Route: 048
  35. SODIUM CHLORIDE [Concomitant]
     Indication: HYPONATRAEMIA
     Route: 048

REACTIONS (5)
  - MULTIPLE MYELOMA [None]
  - PAIN [None]
  - PNEUMONIA ASPIRATION [None]
  - SOMNOLENCE [None]
  - WRONG TECHNIQUE IN DRUG USAGE PROCESS [None]
